FAERS Safety Report 9559736 (Version 4)
Quarter: 2013Q4

REPORT INFORMATION
  Report Type: Report from Study
  Country: US (occurrence: US)
  Receive Date: 20130927
  Receipt Date: 20131112
  Transmission Date: 20140711
  Serious: Yes (Hospitalization)
  Sender: FDA-Public Use
  Company Number: US-EISAI INC-E7389-04217-CLI-US

PATIENT
  Age: 73 Year
  Sex: Female

DRUGS (1)
  1. HALAVEN [Suspect]
     Indication: CERVIX CARCINOMA
     Route: 041
     Dates: start: 20130507, end: 20130916

REACTIONS (4)
  - Urosepsis [Recovered/Resolved]
  - Cystitis radiation [Recovering/Resolving]
  - Anaemia [Recovering/Resolving]
  - Pulmonary embolism [Recovered/Resolved]
